FAERS Safety Report 7116102-5 (Version None)
Quarter: 2010Q4

REPORT INFORMATION
  Report Type: 
  Country: None (occurrence: None)
  Receive Date: 20101122
  Receipt Date: 20101108
  Transmission Date: 20110411
  Serious: Yes (Other)
  Sender: FDA-Public Use
  Company Number: PHHY2010FR71280

PATIENT
  Sex: Female

DRUGS (9)
  1. RASILEZ [Suspect]
     Indication: HYPERTENSION
     Dosage: 1 DF, UNK
     Route: 048
     Dates: start: 20101016, end: 20101016
  2. VALSARTAN  AND HYDROCHLOROTHIAZIDE [Concomitant]
     Dosage: UNK
     Dates: start: 20070901
  3. FLECAINIDE ACETATE [Concomitant]
     Dosage: UNK
     Dates: start: 20090601
  4. CRESTOR [Concomitant]
     Dosage: UNK
     Dates: start: 20071001
  5. GLUCOPHAGE [Concomitant]
     Dosage: UNK
     Dates: start: 20070701
  6. ZYLORIC [Concomitant]
     Dosage: UNK
     Dates: start: 20090601
  7. ESOMEPRAZOLE [Concomitant]
     Dosage: UNK
     Dates: start: 20060101
  8. BI-PROFENID [Concomitant]
     Dosage: UNK
     Dates: start: 20060101
  9. LEVOTHYROXINE SODIUM [Concomitant]
     Dosage: UNK
     Dates: start: 20070701

REACTIONS (5)
  - BURNING SENSATION [None]
  - PARAESTHESIA [None]
  - PRURITUS [None]
  - RASH MACULAR [None]
  - RESPIRATORY DISORDER [None]
